FAERS Safety Report 25990851 (Version 3)
Quarter: 2025Q4

REPORT INFORMATION
  Report Type: Spontaneous
  Country: US (occurrence: US)
  Receive Date: 20251103
  Receipt Date: 20251203
  Transmission Date: 20260117
  Serious: Yes (Death, Other)
  Sender: ARDELYX
  Company Number: US-ARDELYX-2025ARDX008027

PATIENT
  Sex: Female

DRUGS (1)
  1. IBSRELA [Suspect]
     Active Substance: TENAPANOR HYDROCHLORIDE
     Indication: Irritable bowel syndrome
     Dosage: 50 MG, BID, BEFORE MEALS
     Route: 048
     Dates: start: 20250616, end: 202509

REACTIONS (2)
  - Breast cancer stage IV [Fatal]
  - Organ failure [Fatal]

NARRATIVE: CASE EVENT DATE: 20250101
